FAERS Safety Report 4321143-7 (Version None)
Quarter: 2004Q1

REPORT INFORMATION
  Report Type: 
  Country: None (occurrence: None)
  Receive Date: 20040315
  Receipt Date: 20030311
  Transmission Date: 20041129
  Serious: Yes (Death)
  Sender: FDA-Public Use
  Company Number: US_030393238

PATIENT
  Age: 62 Year
  Sex: Male
  Weight: 65 kg

DRUGS (8)
  1. GEMZAR [Suspect]
     Indication: PALLIATIVE CARE
     Dates: start: 20021101
  2. NEXIUM [Concomitant]
  3. GLYBURIDE [Concomitant]
  4. NOVOLIN N [Concomitant]
  5. CELEBREX [Concomitant]
  6. MORPHINE [Concomitant]
  7. PANCRELIPASE [Concomitant]
  8. FENTANYL [Concomitant]

REACTIONS (1)
  - MALIGNANT NEOPLASM PROGRESSION [None]
